FAERS Safety Report 8747243 (Version 2)
Quarter: 2012Q4

REPORT INFORMATION
  Report Type: 
  Country: US (occurrence: US)
  Receive Date: 20120827
  Receipt Date: 20120906
  Transmission Date: 20130627
  Serious: Yes (Hospitalization)
  Sender: FDA-Public Use
  Company Number: US-ACTELION-A-NJ2012-70232

PATIENT
  Age: 40 Year
  Sex: Male

DRUGS (3)
  1. VELETRI [Suspect]
     Indication: PULMONARY ARTERIAL HYPERTENSION
     Dosage: 12 ng/kg, per min
     Route: 041
     Dates: start: 20120604
  2. ADCIRCA [Concomitant]
  3. LETAIRIS [Concomitant]

REACTIONS (8)
  - Pneumonia [Recovered/Resolved]
  - Pleurisy [Recovered/Resolved]
  - Cough [Recovered/Resolved]
  - Vomiting [Recovered/Resolved]
  - Cellulitis [Recovered/Resolved]
  - Pyrexia [Unknown]
  - Pulmonary arterial hypertension [Unknown]
  - Skin irritation [Recovered/Resolved]
